FAERS Safety Report 6214231-1 (Version None)
Quarter: 2009Q2

REPORT INFORMATION
  Report Type: 
  Country: None (occurrence: None)
  Receive Date: 20090604
  Receipt Date: 20090525
  Transmission Date: 20091009
  Serious: Yes (Hospitalization, Other)
  Sender: FDA-Public Use
  Company Number: PHHY2009ZA14863

PATIENT
  Sex: Female

DRUGS (5)
  1. DIOVAN HCT [Suspect]
     Dosage: 80 MG/DAY
  2. DIOVAN HCT [Suspect]
     Dosage: 160 MG/DAY
  3. PREMARIN [Concomitant]
  4. LIBRAX [Concomitant]
     Dosage: UNK
     Dates: start: 20080901, end: 20090301
  5. NEXIUM [Concomitant]
     Dosage: UNK
     Dates: start: 20080501, end: 20090101

REACTIONS (19)
  - ABDOMINAL PAIN UPPER [None]
  - ANXIETY [None]
  - BLOOD PRESSURE FLUCTUATION [None]
  - BLOOD PRESSURE INCREASED [None]
  - CATARACT OPERATION [None]
  - CHEST PAIN [None]
  - DRY EYE [None]
  - DYSPEPSIA [None]
  - EYE IRRITATION [None]
  - HELICOBACTER INFECTION [None]
  - HYPOTENSION [None]
  - IRRITABLE BOWEL SYNDROME [None]
  - MALAISE [None]
  - MUSCLE SPASMS [None]
  - NO THERAPEUTIC RESPONSE [None]
  - OESOPHAGEAL PAIN [None]
  - OESOPHAGITIS [None]
  - OROPHARYNGEAL PAIN [None]
  - STRESS [None]
